FAERS Safety Report 20405761 (Version 1)
Quarter: 2022Q1

REPORT INFORMATION
  Report Type: Spontaneous
  Country: US (occurrence: None)
  Receive Date: 20220130
  Receipt Date: 20220130
  Transmission Date: 20220423
  Serious: Yes (Hospitalization)
  Sender: FDA-Public Use
  Company Number: None

PATIENT
  Age: 79 Year
  Sex: Female
  Weight: 63.5 kg

DRUGS (2)
  1. DAPSONE [Suspect]
     Active Substance: DAPSONE
     Indication: Central nervous system vasculitis
     Dosage: FREQUENCY : DAILY;?
     Route: 048
     Dates: start: 20211107, end: 20211215
  2. PREDNISONE [Concomitant]
     Active Substance: PREDNISONE
     Dates: start: 20211107

REACTIONS (1)
  - Methaemoglobinaemia [None]

NARRATIVE: CASE EVENT DATE: 20211215
